FAERS Safety Report 10171870 (Version 2)
Quarter: 2015Q1

REPORT INFORMATION
  Report Type: Spontaneous
  Country: US (occurrence: None)
  Receive Date: 20140512
  Receipt Date: 20150224
  Transmission Date: 20150720
  Serious: Yes (Death)
  Sender: FDA-Public Use
  Company Number: 1713747-2014-99964

PATIENT
  Age: 85 Year
  Sex: Male
  Weight: 74.4 kg

DRUGS (22)
  1. COZAR [Concomitant]
  2. SODIUM CHLORIDE. [Concomitant]
     Active Substance: SODIUM CHLORIDE
  3. DIALYVITE [Concomitant]
     Active Substance: ASCORBIC ACID\BIOTIN\CALCIUM PANTOTHENATE\COBALAMIN\FOLIC ACID\NIACINAMIDE\PYRIDOXINE HYDROCHLORIDE\RIBOFLAVIN\THIAMINE MONONITRATE
  4. 0.9% SODIUM CHLORIDE INJECTION, 1L [Suspect]
     Active Substance: SODIUM CHLORIDE
     Indication: CHRONIC KIDNEY DISEASE
     Dosage: 3 X PER WEEK
     Route: 010
  5. HEPARIN [Concomitant]
     Active Substance: HEPARIN SODIUM
  6. MIRALAX [Concomitant]
     Active Substance: POLYETHYLENE GLYCOL 3350
  7. NORVASC [Concomitant]
     Active Substance: AMLODIPINE BESYLATE
  8. RENAGEL [Concomitant]
     Active Substance: SEVELAMER HYDROCHLORIDE
  9. SENSIPER [Concomitant]
  10. CUSTOM COMBISET [Concomitant]
  11. COLACE [Concomitant]
     Active Substance: DOCUSATE SODIUM
  12. FLOMAX [Concomitant]
     Active Substance: TAMSULOSIN HYDROCHLORIDE
  13. NOVOLOG [Concomitant]
     Active Substance: INSULIN ASPART
  14. 2008T HEMODIALYSIS SYSTEM [Concomitant]
  15. EPOGEN [Concomitant]
     Active Substance: ERYTHROPOIETIN
  16. NEPHR-CARB STEADY [Concomitant]
  17. NEXIUM [Concomitant]
     Active Substance: ESOMEPRAZOLE MAGNESIUM
  18. OPTIFLUX DIALYZER [Concomitant]
     Active Substance: DEVICE
  19. NATURALYTE [Concomitant]
     Active Substance: ACETIC ACID\SODIUM ACETATE
  20. GRANUFLO [Concomitant]
     Active Substance: ACETIC ACID\SODIUM ACETATE
  21. ACETAMINOPHEN. [Concomitant]
     Active Substance: ACETAMINOPHEN
  22. HYDRALAZI [Concomitant]

REACTIONS (1)
  - Unresponsive to stimuli [None]

NARRATIVE: CASE EVENT DATE: 20140410
